FAERS Safety Report 20222448 (Version 1)
Quarter: 2021Q4

REPORT INFORMATION
  Report Type: Other
  Country: AU (occurrence: AU)
  Receive Date: 20211223
  Receipt Date: 20211223
  Transmission Date: 20220304
  Serious: Yes (Other)
  Sender: FDA-Public Use
  Company Number: AU-TOLMAR, INC.-21AU030822

PATIENT
  Sex: Male

DRUGS (3)
  1. ELIGARD [Suspect]
     Active Substance: LEUPROLIDE ACETATE
     Indication: Prostate cancer
     Dosage: 7.5 MILLIGRAM, Q 1 MONTH
     Dates: start: 202104
  2. ELIGARD [Suspect]
     Active Substance: LEUPROLIDE ACETATE
     Indication: Prostate cancer
     Dosage: 22.5 MILLIGRAM, Q 3 MONTH
  3. ELIGARD [Suspect]
     Active Substance: LEUPROLIDE ACETATE
     Indication: Prostate cancer
     Dosage: 45 MILLIGRAM, Q 6 MONTH
     Dates: start: 202108

REACTIONS (10)
  - Throat cancer [Unknown]
  - Weight decreased [Unknown]
  - Ageusia [Unknown]
  - Amputation stump pain [Unknown]
  - Phantom limb syndrome [Unknown]
  - Mood swings [Unknown]
  - Hot flush [Unknown]
  - Loss of libido [Unknown]
  - Muscle atrophy [Unknown]
  - Arthralgia [Unknown]
